FAERS Safety Report 9454192 (Version 5)
Quarter: 2014Q2

REPORT INFORMATION
  Report Type: Spontaneous
  Country: US (occurrence: US)
  Receive Date: 20130812
  Receipt Date: 20140520
  Transmission Date: 20141212
  Serious: Yes (Hospitalization, Other)
  Sender: FDA-Public Use
  Company Number: US-BAYER-2013-097305

PATIENT
  Age: 28 Year
  Sex: Female
  Weight: 78.01 kg

DRUGS (5)
  1. MIRENA [Suspect]
     Indication: CONTRACEPTION
     Dosage: 20 MCG/24HR, CONT
     Route: 015
     Dates: start: 200404, end: 20130727
  2. COLACE [Concomitant]
  3. VICODIN [Concomitant]
  4. AUGMENTIN [Concomitant]
  5. AMOXICILLIN [Concomitant]

REACTIONS (18)
  - Uterine perforation [None]
  - Infection [None]
  - Pregnancy with contraceptive device [Recovered/Resolved]
  - Drug ineffective [None]
  - Urinary tract infection [None]
  - Injury [None]
  - Abdominal pain lower [None]
  - Emotional distress [None]
  - Abdominal mass [None]
  - Muscular weakness [None]
  - Muscle spasms [None]
  - Asthenia [None]
  - Pyrexia [None]
  - Chills [None]
  - Depression [None]
  - Anxiety [None]
  - Device misuse [None]
  - Device issue [None]
